FAERS Safety Report 11209342 (Version 1)
Quarter: 2015Q2

REPORT INFORMATION
  Report Type: Spontaneous
  Country: US (occurrence: US)
  Receive Date: 20150622
  Receipt Date: 20150622
  Transmission Date: 20150821
  Serious: No
  Sender: FDA-Public Use
  Company Number: US-GLAXOSMITHKLINE-US2015086429

PATIENT
  Age: 32 Year
  Sex: Male

DRUGS (1)
  1. NICODERM CQ [Suspect]
     Active Substance: NICOTINE
     Indication: SMOKING CESSATION THERAPY
     Dosage: 21 MG, UNK
     Dates: start: 20150615, end: 20150617

REACTIONS (2)
  - Application site rash [Not Recovered/Not Resolved]
  - Application site urticaria [Not Recovered/Not Resolved]

NARRATIVE: CASE EVENT DATE: 20150615
